FAERS Safety Report 9867667 (Version 1)
Quarter: 2014Q1

REPORT INFORMATION
  Report Type: Spontaneous
  Country: IT (occurrence: IT)
  Receive Date: 20140204
  Receipt Date: 20140204
  Transmission Date: 20141002
  Serious: Yes (Hospitalization)
  Sender: FDA-Public Use
  Company Number: IT-BAYER-2014-017612

PATIENT
  Age: 69 Year
  Sex: Male
  Weight: 80 kg

DRUGS (1)
  1. CARDIOASPIRIN [Suspect]
     Indication: PROPHYLAXIS
     Dosage: DAILY DOSE 1 DF
     Route: 048
     Dates: start: 20131201, end: 20140117

REACTIONS (2)
  - Cerebral haemorrhage [Recovering/Resolving]
  - Hemiparesis [Recovering/Resolving]
